FAERS Safety Report 25719341 (Version 2)
Quarter: 2025Q3

REPORT INFORMATION
  Report Type: Report from Study
  Country: CA (occurrence: CA)
  Receive Date: 20250824
  Receipt Date: 20250911
  Transmission Date: 20251020
  Serious: Yes (Hospitalization, Other)
  Sender: HLS THERAPEUTICS
  Company Number: CA-HLS-202502216

PATIENT
  Age: 77 Year
  Sex: Female

DRUGS (2)
  1. CLOZARIL [Suspect]
     Active Substance: CLOZAPINE
     Indication: Product used for unknown indication
     Route: 048
     Dates: start: 20020107, end: 20250818
  2. CLOZARIL [Suspect]
     Active Substance: CLOZAPINE
     Indication: Product used for unknown indication
     Route: 048

REACTIONS (4)
  - Neutrophilia [Unknown]
  - Hypotension [Unknown]
  - Therapy interrupted [Unknown]
  - Leukocytosis [Unknown]

NARRATIVE: CASE EVENT DATE: 20250818
